FAERS Safety Report 24270235 (Version 3)
Quarter: 2024Q4

REPORT INFORMATION
  Report Type: Spontaneous
  Country: AR (occurrence: AR)
  Receive Date: 20240830
  Receipt Date: 20241015
  Transmission Date: 20250114
  Serious: No
  Sender: PFIZER
  Company Number: AR-PFIZER INC-202400242763

PATIENT
  Age: 14 Year
  Sex: Male

DRUGS (1)
  1. GENOTROPIN [Suspect]
     Active Substance: SOMATROPIN
     Indication: Short stature
     Dosage: 1.4 MG, DAILY
     Dates: start: 20240715

REACTIONS (3)
  - Device physical property issue [Unknown]
  - Device leakage [Unknown]
  - Drug dose omission by device [Unknown]

NARRATIVE: CASE EVENT DATE: 20240715
